FAERS Safety Report 8533322-3 (Version None)
Quarter: 2012Q3

REPORT INFORMATION
  Report Type: 
  Country: None (occurrence: None)
  Receive Date: 20120717
  Receipt Date: 20120717
  Transmission Date: 20120928
  Serious: Yes (Life-Threatening)
  Sender: FDA-Public Use
  Company Number: None

PATIENT
  Age: 75 Year
  Sex: Male

DRUGS (8)
  1. DIAZEPAM [Concomitant]
  2. TERAZOSIN HYDROCHLORIDE [Concomitant]
  3. HEPARIN [Suspect]
     Indication: PULMONARY EMBOLISM
     Dosage: 6560UNIT  BOLUS/1476UNITS/HR
     Dates: start: 20111106, end: 20111107
  4. HYDROCHLOROTHIAZIDE [Concomitant]
  5. COMBIVENT [Concomitant]
  6. ZOCOR [Concomitant]
  7. ADVAIR [Concomitant]
  8. WARFARIN SODIUM [Suspect]
     Indication: PULMONARY EMBOLISM
     Dosage: 5MG X 1   7.5MG X 1
     Dates: start: 20111106, end: 20111107

REACTIONS (1)
  - CEREBRAL HAEMORRHAGE [None]
